FAERS Safety Report 5303479-6 (Version None)
Quarter: 2007Q2

REPORT INFORMATION
  Report Type: 
  Country: None (occurrence: None)
  Receive Date: 20070420
  Receipt Date: 20070405
  Transmission Date: 20071010
  Serious: Yes (Hospitalization)
  Sender: FDA-Public Use
  Company Number: US-AMGEN-US218428

PATIENT
  Sex: Male
  Weight: 104.4 kg

DRUGS (3)
  1. PROCRIT [Suspect]
     Indication: RENAL FAILURE CHRONIC
     Route: 065
  2. INSULIN [Concomitant]
     Route: 065
  3. COREG [Concomitant]
     Route: 065

REACTIONS (1)
  - CARDIAC FAILURE CONGESTIVE [None]
